FAERS Safety Report 12683872 (Version 1)
Quarter: 2016Q3

REPORT INFORMATION
  Report Type: Spontaneous
  Country: CA (occurrence: CA)
  Receive Date: 20160825
  Receipt Date: 20160825
  Transmission Date: 20161109
  Serious: Yes (Hospitalization, Other)
  Sender: FDA-Public Use
  Company Number: CA-PFIZER INC-2016392512

PATIENT
  Age: 49 Year
  Sex: Male

DRUGS (12)
  1. LYRICA [Concomitant]
     Active Substance: PREGABALIN
     Dosage: 150 MG, UNK
     Dates: start: 20130802
  2. ACT PREGABALIN [Concomitant]
     Dosage: 150 MG, UNK
     Dates: start: 20130831
  3. LYRICA [Concomitant]
     Active Substance: PREGABALIN
     Dosage: 75 MG, UNK
     Dates: start: 20130718
  4. APO-CEPHALEX [Concomitant]
     Active Substance: CEPHALEXIN
     Dosage: 500 MG, UNK
     Dates: start: 20130507
  5. NEURONTIN [Suspect]
     Active Substance: GABAPENTIN
     Indication: BACK PAIN
     Dosage: 300 MG, 1X/DAY
     Dates: start: 20120625, end: 20121025
  6. NEURONTIN [Suspect]
     Active Substance: GABAPENTIN
     Dosage: 300 MG, 4X/DAY
     Dates: start: 20130206, end: 20140318
  7. LYRICA [Concomitant]
     Active Substance: PREGABALIN
     Dosage: 150 MG, UNK
     Dates: start: 20130831
  8. NOVO-CLOXIN [Concomitant]
     Active Substance: CLOXACILLIN SODIUM
     Dosage: 500 MG, UNK
     Dates: start: 20130507
  9. NOVO-PREDNISONE [Concomitant]
     Active Substance: PREDNISONE
     Dosage: 50 MG, UNK
     Dates: start: 20121218
  10. NEURONTIN [Suspect]
     Active Substance: GABAPENTIN
     Indication: NEURALGIA
     Dosage: 300 MG, 2X/DAY
     Dates: start: 20121026, end: 20121127
  11. NEURONTIN [Suspect]
     Active Substance: GABAPENTIN
     Dosage: 300 MG, 3X/DAY
     Dates: start: 20121128, end: 20130205
  12. LOPROX [Concomitant]
     Active Substance: CICLOPIROX\CICLOPIROX OLAMINE
     Dosage: 1 %, UNK
     Route: 061
     Dates: start: 20130319

REACTIONS (6)
  - Iron deficiency anaemia [Not Recovered/Not Resolved]
  - Product use issue [Unknown]
  - Hyperlipidaemia [Not Recovered/Not Resolved]
  - Polycythaemia [Not Recovered/Not Resolved]
  - Acute myocardial infarction [Recovered/Resolved]
  - Coronary artery disease [Unknown]

NARRATIVE: CASE EVENT DATE: 20140318
